FAERS Safety Report 5050426-0 (Version None)
Quarter: 2006Q3

REPORT INFORMATION
  Report Type: 
  Country: None (occurrence: None)
  Receive Date: 20060707
  Receipt Date: 20060623
  Transmission Date: 20061208
  Serious: Yes (Hospitalization)
  Sender: FDA-Public Use
  Company Number: RENA-11810

PATIENT
  Sex: Female

DRUGS (1)
  1. RENAGEL [Suspect]
     Indication: HYPERPHOSPHATAEMIA
     Dates: start: 20050901, end: 20051101

REACTIONS (2)
  - ABDOMINAL ABSCESS [None]
  - LARGE INTESTINE PERFORATION [None]
